FAERS Safety Report 5207951-9 (Version None)
Quarter: 2007Q1

REPORT INFORMATION
  Report Type: 
  Country: None (occurrence: None)
  Receive Date: 20070115
  Receipt Date: 20070110
  Transmission Date: 20070707
  Serious: Yes (Hospitalization, Other)
  Sender: FDA-Public Use
  Company Number: US-ELI_LILLY_AND_COMPANY-US200609003704

PATIENT
  Age: 47 Year
  Sex: Male
  Weight: 92.97 kg

DRUGS (12)
  1. ZYPREXA [Suspect]
     Indication: SCHIZOPHRENIA
     Dosage: 20 MG, UNKNOWN
     Dates: start: 20000101
  2. ZYPREXA [Suspect]
     Dosage: 15 MG, UNKNOWN
  3. NAVANE [Concomitant]
     Dosage: UNK, UNKNOWN
     Dates: start: 20000101
  4. WELLBUTRIN [Concomitant]
     Dosage: UNK, UNKNOWN
     Dates: start: 20000101
  5. FLUOXETINE                              /N/A/ [Concomitant]
     Dosage: UNK, UNKNOWN
     Dates: start: 20040101
  6. SERZONE [Concomitant]
     Dosage: UNK, UNKNOWN
     Dates: start: 20000101
  7. ATENOLOL [Concomitant]
     Dosage: UNK, UNKNOWN
     Dates: start: 20030101
  8. MICROZIDE [Concomitant]
     Dosage: UNK, UNKNOWN
     Dates: start: 20050501
  9. METOLAZONE [Concomitant]
     Dosage: UNK, UNKNOWN
     Dates: start: 20050301
  10. LASIX [Concomitant]
     Dosage: UNK, UNKNOWN
     Dates: start: 20050601
  11. LITHIUM CARBONATE [Concomitant]
     Dates: start: 20000101
  12. TRIMIPRAMINE MALEATE [Concomitant]
     Dates: start: 20000101

REACTIONS (5)
  - DIABETES MELLITUS [None]
  - PAIN [None]
  - PANCREATIC CARCINOMA [None]
  - PANCREATITIS ACUTE [None]
  - PANCREATITIS CHRONIC [None]
